FAERS Safety Report 12518113 (Version 1)
Quarter: 2016Q2

REPORT INFORMATION
  Report Type: Spontaneous
  Country: JP (occurrence: JP)
  Receive Date: 20160630
  Receipt Date: 20160630
  Transmission Date: 20160815
  Serious: Yes (Hospitalization)
  Sender: FDA-Public Use
  Company Number: JP-BRISTOL-MYERS SQUIBB COMPANY-BMS-2016-049873

PATIENT
  Age: 2 Decade
  Sex: Male

DRUGS (1)
  1. BARACLUDE [Suspect]
     Active Substance: ENTECAVIR
     Indication: CHRONIC HEPATITIS B
     Dosage: 0.5 MG, QD
     Route: 048

REACTIONS (5)
  - Weight decreased [Unknown]
  - Blood cholesterol increased [Unknown]
  - Blood uric acid increased [Unknown]
  - Laboratory test abnormal [Unknown]
  - Anaemia [Recovered/Resolved]

NARRATIVE: CASE EVENT DATE: 20160525
